FAERS Safety Report 15074766 (Version 1)
Quarter: 2018Q2

REPORT INFORMATION
  Report Type: Report from Study
  Country: US (occurrence: US)
  Receive Date: 20180627
  Receipt Date: 20180627
  Transmission Date: 20180711
  Serious: Yes (Other)
  Sender: FDA-Public Use
  Company Number: US-SAOL THERAPEUTICS-2017SAO01298

PATIENT
  Age: 43 Year
  Sex: Male

DRUGS (41)
  1. COMPOUNDED BACLOFEN [Suspect]
     Active Substance: BACLOFEN
     Dosage: 341.70 ?G, \DAY-MAX
     Route: 037
     Dates: start: 20170130, end: 20170301
  2. BUPIVACAINE. [Suspect]
     Active Substance: BUPIVACAINE
     Dosage: 18.746 MG, \DAY
     Route: 037
     Dates: start: 20170313
  3. BUPIVACAINE. [Suspect]
     Active Substance: BUPIVACAINE
     Dosage: 25.645 MG, \DAY-MAX
     Route: 037
     Dates: start: 20170313
  4. HYDROMORPHONE HYDROCHLORIDE. [Suspect]
     Active Substance: HYDROMORPHONE HYDROCHLORIDE
     Dosage: 4.556 MG, \DAY- MAX
     Route: 037
     Dates: start: 20170130, end: 20170301
  5. HYDROMORPHONE HYDROCHLORIDE. [Suspect]
     Active Substance: HYDROMORPHONE HYDROCHLORIDE
     Dosage: 5.3646 MG, \DAY-MAX
     Route: 037
     Dates: start: 20170313, end: 20170313
  6. CLONIDINE. [Suspect]
     Active Substance: CLONIDINE
     Dosage: 87.59 ?G, \DAY
     Route: 037
     Dates: start: 20170313, end: 20170313
  7. CLONIDINE. [Suspect]
     Active Substance: CLONIDINE
     Dosage: 156.47 ?G, \DAY
     Route: 037
     Dates: start: 20170329
  8. CLONIDINE. [Suspect]
     Active Substance: CLONIDINE
     Dosage: 244 ?G, \DAY- MAX
     Route: 037
     Dates: start: 20170329
  9. COMPOUNDED BACLOFEN [Suspect]
     Active Substance: BACLOFEN
     Dosage: 585.60 ?G, \DAY-MAX
     Dates: start: 20170329
  10. BUPIVACAINE. [Suspect]
     Active Substance: BUPIVACAINE
     Dosage: 22.780 MG, \DAY- MAX
     Route: 037
     Dates: start: 20170130, end: 20170301
  11. HYDROMORPHONE HYDROCHLORIDE. [Suspect]
     Active Substance: HYDROMORPHONE HYDROCHLORIDE
     Dosage: 3.7552 MG, \DAY
     Route: 037
     Dates: start: 20170329
  12. CLONIDINE. [Suspect]
     Active Substance: CLONIDINE
     Dosage: 128.22 ?G, \DAY- MAX
     Route: 037
     Dates: start: 20170313
  13. BUPIVACAINE. [Suspect]
     Active Substance: BUPIVACAINE
     Dosage: 22.236 MG, \DAY-MAX
     Route: 037
     Dates: start: 20170301
  14. BUPIVACAINE. [Suspect]
     Active Substance: BUPIVACAINE
     Dosage: UNK
  15. COMPOUNDED BACLOFEN [Suspect]
     Active Substance: BACLOFEN
     Dosage: 402.34 ?G, \DAY-MAX
     Route: 037
     Dates: start: 20170313, end: 20170313
  16. BUPIVACAINE. [Suspect]
     Active Substance: BUPIVACAINE
     Dosage: 19.520 MG, \DAY-MAX
     Route: 037
     Dates: start: 20170329
  17. HYDROMORPHONE HYDROCHLORIDE. [Suspect]
     Active Substance: HYDROMORPHONE HYDROCHLORIDE
     Dosage: 4.4473 MG, \DAY-MAX
     Route: 037
     Dates: start: 20170301
  18. HYDROMORPHONE HYDROCHLORIDE. [Suspect]
     Active Substance: HYDROMORPHONE HYDROCHLORIDE
     Dosage: 3.5038 MG, \DAY
     Route: 037
     Dates: start: 20170313, end: 20170313
  19. CLONIDINE. [Suspect]
     Active Substance: CLONIDINE
     Dosage: 87.59 ?G, \DAY
     Route: 037
     Dates: start: 20170130, end: 20170301
  20. CLONIDINE. [Suspect]
     Active Substance: CLONIDINE
     Dosage: 113.90 ?G, \DAY-MAX
     Route: 037
     Dates: start: 20170130, end: 20170301
  21. CLONIDINE. [Suspect]
     Active Substance: CLONIDINE
     Dosage: 111.18 ?G, \DAY- MAX
     Route: 037
     Dates: start: 20170301
  22. COMPOUNDED BACLOFEN [Suspect]
     Active Substance: BACLOFEN
     Dosage: 333.55 ?G, \DAY- MAX
     Route: 037
     Dates: start: 20170301
  23. COMPOUNDED BACLOFEN [Suspect]
     Active Substance: BACLOFEN
     Dosage: 281.19 ?G, \DAY
     Route: 037
     Dates: start: 20170313
  24. BUPIVACAINE. [Suspect]
     Active Substance: BUPIVACAINE
     Dosage: 17.519 MG, \DAY
     Route: 037
     Dates: start: 20170130, end: 20170301
  25. BUPIVACAINE. [Suspect]
     Active Substance: BUPIVACAINE
     Dosage: 20.002 MG, \DAY
     Route: 037
     Dates: start: 20170301
  26. HYDROMORPHONE HYDROCHLORIDE. [Suspect]
     Active Substance: HYDROMORPHONE HYDROCHLORIDE
     Dosage: 3.7492 MG, \DAY
     Route: 037
     Dates: start: 20170313
  27. HYDROMORPHONE HYDROCHLORIDE. [Suspect]
     Active Substance: HYDROMORPHONE HYDROCHLORIDE
     Dosage: 5.1289 MG, \DAY -MAX
     Route: 037
     Dates: start: 20170313
  28. HYDROMORPHONE HYDROCHLORIDE. [Suspect]
     Active Substance: HYDROMORPHONE HYDROCHLORIDE
     Dosage: 5.8560  MG, \DAY-MAX
     Dates: start: 20170329
  29. COMPOUNDED BACLOFEN [Suspect]
     Active Substance: BACLOFEN
     Dosage: 262.78 ?G, \DAY
     Route: 037
     Dates: start: 20170313, end: 20170313
  30. HYDROMORPHONE HYDROCHLORIDE. [Suspect]
     Active Substance: HYDROMORPHONE HYDROCHLORIDE
     Dosage: 4.0004 MG, \DAY
     Route: 037
     Dates: start: 20170301
  31. CLONIDINE. [Suspect]
     Active Substance: CLONIDINE
     Dosage: 100.01 ?G, \DAY
     Route: 037
     Dates: start: 20170301
  32. COMPOUNDED BACLOFEN [Suspect]
     Active Substance: BACLOFEN
     Dosage: 300.3 ?G, \DAY
     Route: 037
     Dates: start: 20170301
  33. HYDROMORPHONE HYDROCHLORIDE. [Suspect]
     Active Substance: HYDROMORPHONE HYDROCHLORIDE
     Dosage: 3.5038 MG, \DAY
     Route: 037
     Dates: start: 20170130, end: 20170301
  34. CLONIDINE. [Suspect]
     Active Substance: CLONIDINE
     Dosage: 93.73 ?G, \DAY
     Route: 037
     Dates: start: 20170313
  35. COMPOUNDED BACLOFEN [Suspect]
     Active Substance: BACLOFEN
     Dosage: 262.78 ?G, \DAY
     Route: 037
     Dates: start: 20170130, end: 20170301
  36. COMPOUNDED BACLOFEN [Suspect]
     Active Substance: BACLOFEN
     Dosage: 384.67 ?G, \DAY-MAX
     Route: 037
     Dates: start: 20170313
  37. COMPOUNDED BACLOFEN [Suspect]
     Active Substance: BACLOFEN
     Dosage: 375.52 ?G, \DAY
     Route: 037
     Dates: start: 20170329
  38. BUPIVACAINE. [Suspect]
     Active Substance: BUPIVACAINE
     Dosage: 17.519 MG, \DAY
     Route: 037
     Dates: start: 20170313, end: 20170313
  39. BUPIVACAINE. [Suspect]
     Active Substance: BUPIVACAINE
     Dosage: 26.823 MG, \DAY-MAX
     Route: 037
     Dates: start: 20170313, end: 20170313
  40. BUPIVACAINE. [Suspect]
     Active Substance: BUPIVACAINE
     Dosage: 12.517 MG, \DAY
     Route: 037
     Dates: start: 20170329
  41. CLONIDINE. [Suspect]
     Active Substance: CLONIDINE
     Dosage: 134.11 ?G, \DAY-MAX
     Route: 037
     Dates: start: 20170313, end: 20170313

REACTIONS (6)
  - Implant site pain [Not Recovered/Not Resolved]
  - Pain [Recovered/Resolved]
  - Drug withdrawal syndrome [Recovered/Resolved]
  - Vomiting [Recovered/Resolved]
  - Hypoaesthesia [Recovered/Resolved]
  - Nausea [Recovered/Resolved]

NARRATIVE: CASE EVENT DATE: 20170303
